FAERS Safety Report 18766767 (Version 4)
Quarter: 2021Q1

REPORT INFORMATION
  Report Type: Report from Study
  Country: BE (occurrence: BE)
  Receive Date: 20210121
  Receipt Date: 20210215
  Transmission Date: 20210419
  Serious: Yes (Hospitalization, Other)
  Sender: FDA-Public Use
  Company Number: BE-BRISTOL-MYERS SQUIBB COMPANY-BMS-2021-003522

PATIENT
  Sex: Male

DRUGS (4)
  1. IPILIMUMAB [Suspect]
     Active Substance: IPILIMUMAB
     Indication: MALIGNANT MELANOMA
     Dosage: EVERY 3 WEEKS IV IN HOSPITAL
     Route: 042
     Dates: start: 20201102
  2. IPILIMUMAB [Suspect]
     Active Substance: IPILIMUMAB
     Dosage: EVERY 3 WEEKS IV IN HOSPITAL
     Route: 042
     Dates: start: 20201229
  3. NIVOLUMAB [Suspect]
     Active Substance: NIVOLUMAB
     Dosage: EVERY 3 WEEKS IV IN HOSPITAL
     Route: 042
     Dates: start: 20201229
  4. NIVOLUMAB [Suspect]
     Active Substance: NIVOLUMAB
     Indication: MALIGNANT MELANOMA
     Dosage: EVERY 3 WEEKS IV IN HOSPITAL
     Route: 042
     Dates: start: 20201102

REACTIONS (9)
  - Conjunctivitis [Unknown]
  - Pneumonitis [Unknown]
  - Renal disorder [Not Recovered/Not Resolved]
  - Enteritis [Not Recovered/Not Resolved]
  - Rash [Recovered/Resolved]
  - Asthenia [Not Recovered/Not Resolved]
  - Weight decreased [Not Recovered/Not Resolved]
  - Dyspnoea [Not Recovered/Not Resolved]
  - Pyrexia [Recovered/Resolved]
